FAERS Safety Report 19218647 (Version 2)
Quarter: 2021Q2

REPORT INFORMATION
  Report Type: Spontaneous
  Country: CH (occurrence: CH)
  Receive Date: 20210505
  Receipt Date: 20210512
  Transmission Date: 20210717
  Serious: Yes (Other)
  Sender: FDA-Public Use
  Company Number: CH-ANIPHARMA-2021-CH-000022

PATIENT
  Age: 73 Year
  Sex: Female

DRUGS (18)
  1. DIBASE [Suspect]
     Active Substance: CHOLECALCIFEROL
     Route: 065
  2. ASPIRIN CARDIO [Suspect]
     Active Substance: ASPIRIN
     Dosage: 100 MG DAILY
     Route: 065
  3. ELTROXINE [Suspect]
     Active Substance: LEVOTHYROXINE
     Dosage: 50 UG DAILY
     Route: 055
  4. TEMESTA (LORAZEPAM) [Suspect]
     Active Substance: LORAZEPAM
     Dosage: 2.5 MG DAILY
     Route: 048
  5. ATACAND [Suspect]
     Active Substance: CANDESARTAN CILEXETIL
     Indication: HYPERTENSION
     Dosage: 8 MG DAILY
     Route: 048
     Dates: start: 20210306, end: 20210307
  6. LAMICTAL [Suspect]
     Active Substance: LAMOTRIGINE
     Dosage: 50 MG DAILY
     Route: 065
  7. LANTUS [Suspect]
     Active Substance: INSULIN GLARGINE
     Route: 065
  8. QUETIAPINE. [Suspect]
     Active Substance: QUETIAPINE
     Dosage: 300 MG BID
     Route: 048
  9. DALMADORM [Suspect]
     Active Substance: FLURAZEPAM HYDROCHLORIDE
     Dosage: 30 MILLIGRAM, TOTAL (IN THE EVENING)
     Route: 048
     Dates: start: 20210306, end: 20210306
  10. SEMAGLUTIDE [Suspect]
     Active Substance: SEMAGLUTIDE
     Route: 065
  11. VOLTAREN [Suspect]
     Active Substance: DICLOFENAC SODIUM
     Route: 065
  12. PARACETAMOL [Suspect]
     Active Substance: ACETAMINOPHEN
     Route: 065
  13. BELOC (METOPROLOL TARTRATE) [Suspect]
     Active Substance: METOPROLOL TARTRATE
     Dosage: 100 MG DAILY
     Route: 048
  14. ONDANSETRON [Suspect]
     Active Substance: ONDANSETRON
     Dosage: 4 MG TOTAL
     Route: 042
     Dates: start: 20210307, end: 20210307
  15. TORASEMIDE [Suspect]
     Active Substance: TORSEMIDE
     Dosage: 10 MG DAILY
     Route: 048
     Dates: start: 20210306, end: 20210307
  16. APROVEL [Suspect]
     Active Substance: IRBESARTAN
     Dosage: 75 MG DAILY
     Route: 065
     Dates: end: 20210304
  17. SYMFONA N [Suspect]
     Active Substance: GINKGO
     Route: 065
  18. NOVORAPID [Suspect]
     Active Substance: INSULIN ASPART
     Route: 065

REACTIONS (3)
  - Tachycardia [Unknown]
  - Hypotension [Unknown]
  - Malaise [Unknown]

NARRATIVE: CASE EVENT DATE: 20210307
